FAERS Safety Report 16756914 (Version 2)
Quarter: 2019Q4

REPORT INFORMATION
  Report Type: Spontaneous
  Country: CA (occurrence: CA)
  Receive Date: 20190829
  Receipt Date: 20191127
  Transmission Date: 20200122
  Serious: Yes (Other)
  Sender: FDA-Public Use
  Company Number: CA-TEVA-2019-CA-1099454

PATIENT
  Age: 83 Year
  Sex: Male
  Weight: 64 kg

DRUGS (6)
  1. SANDOSTATIN [Suspect]
     Active Substance: OCTREOTIDE ACETATE
     Route: 048
  2. FENTANYL. [Concomitant]
     Active Substance: FENTANYL
     Indication: PRODUCT USED FOR UNKNOWN INDICATION
     Route: 065
  3. PAMIDRONATE DISODIUM. [Concomitant]
     Active Substance: PAMIDRONATE DISODIUM
     Indication: PROPHYLAXIS
     Route: 042
  4. MORPHINE [Suspect]
     Active Substance: MORPHINE
     Indication: PRODUCT USED FOR UNKNOWN INDICATION
     Route: 048
  5. SANDOSTATIN [Suspect]
     Active Substance: OCTREOTIDE ACETATE
     Indication: CARCINOID TUMOUR
     Route: 030
  6. SANDOSTATIN [Suspect]
     Active Substance: OCTREOTIDE ACETATE
     Route: 030

REACTIONS (22)
  - Asthenia [Recovered/Resolved]
  - Carcinoid tumour [Recovered/Resolved]
  - Musculoskeletal stiffness [Recovered/Resolved]
  - Needle issue [Recovered/Resolved]
  - Pain in extremity [Recovered/Resolved]
  - Blood pressure increased [Recovered/Resolved]
  - Chest injury [Recovered/Resolved]
  - Malignant neoplasm progression [Recovered/Resolved]
  - Torticollis [Recovered/Resolved]
  - General physical health deterioration [Recovered/Resolved]
  - Metastasis [Recovered/Resolved]
  - Neck pain [Recovered/Resolved]
  - Inappropriate schedule of product administration [Recovered/Resolved]
  - Heart rate decreased [Recovered/Resolved]
  - Musculoskeletal pain [Recovered/Resolved]
  - Oedema peripheral [Recovered/Resolved]
  - Injection site pain [Recovered/Resolved]
  - Body temperature decreased [Recovered/Resolved]
  - Decreased appetite [Recovered/Resolved]
  - Fall [Recovered/Resolved]
  - Movement disorder [Recovered/Resolved]
  - Pollakiuria [Recovered/Resolved]
